FAERS Safety Report 9302217 (Version 1)
Quarter: 2013Q2

REPORT INFORMATION
  Report Type: Spontaneous
  Country: ES (occurrence: ES)
  Receive Date: 20130522
  Receipt Date: 20130522
  Transmission Date: 20140414
  Serious: Yes (Other)
  Sender: FDA-Public Use
  Company Number: ES-B.I. PHARMACEUTICALS,INC./RIDGEFIELD-2013-ES-00236ES

PATIENT
  Age: 64 Year
  Sex: Male

DRUGS (1)
  1. MICARDISPLUS [Suspect]
     Indication: HYPERTENSION
     Dosage: STRENGTH: 80 MG/12.5 MG; DAILY DOSE: 1DF
     Route: 048
     Dates: start: 20111210, end: 20130220

REACTIONS (5)
  - Vertigo [Recovered/Resolved]
  - Presyncope [Recovered/Resolved]
  - Dizziness [Recovered/Resolved]
  - Tinnitus [Recovered/Resolved]
  - Erectile dysfunction [Recovered/Resolved]
